FAERS Safety Report 18080951 (Version 1)
Quarter: 2020Q3

REPORT INFORMATION
  Report Type: Spontaneous
  Country: SI (occurrence: SI)
  Receive Date: 20200728
  Receipt Date: 20200728
  Transmission Date: 20201103
  Serious: Yes (Hospitalization, Other)
  Sender: FDA-Public Use
  Company Number: SI-MYLANLABS-2020M1066788

PATIENT
  Age: 43 Year
  Sex: Male
  Weight: 100 kg

DRUGS (4)
  1. ASPIRIN                            /00002701/ [Concomitant]
     Active Substance: ASPIRIN
     Indication: ACUTE MYOCARDIAL INFARCTION
     Dosage: 100 MILLIGRAM, QD
     Route: 048
  2. AMOKSIKLAV                         /00756801/ [Concomitant]
     Indication: ASPIRATION
     Dosage: UNK
     Dates: start: 2020
  3. PIPERACILLIN,TAZOBACTAM MYLAN [Suspect]
     Active Substance: PIPERACILLIN SODIUM\TAZOBACTAM SODIUM
     Indication: PNEUMONIA
     Dosage: 4.5 GRAM, Q6H
     Route: 042
  4. VANCOMYCIN [Concomitant]
     Active Substance: VANCOMYCIN
     Indication: C-REACTIVE PROTEIN INCREASED
     Dosage: REF. VALUE 7?14 UMOL/L; MEASURED VALUES UP TO 19.2 UMOL/L
     Dates: start: 2020

REACTIONS (1)
  - Hepatic failure [Recovering/Resolving]

NARRATIVE: CASE EVENT DATE: 2020
